FAERS Safety Report 25852826 (Version 2)
Quarter: 2025Q4

REPORT INFORMATION
  Report Type: Spontaneous
  Country: US (occurrence: US)
  Receive Date: 20250926
  Receipt Date: 20251010
  Transmission Date: 20260117
  Serious: Yes (Other)
  Sender: SANDOZ
  Company Number: US-SANDOZ-SDZ2025US070455

PATIENT
  Age: 34 Year
  Sex: Female

DRUGS (1)
  1. TACROLIMUS [Suspect]
     Active Substance: TACROLIMUS
     Indication: Lung transplant
     Dosage: UNK(HIGH-DOSE TACROLIMUS)
     Route: 065

REACTIONS (2)
  - Acute kidney injury [Unknown]
  - Nephropathy toxic [Unknown]
